FAERS Safety Report 18288660 (Version 1)
Quarter: 2020Q3

REPORT INFORMATION
  Report Type: Spontaneous
  Country: US (occurrence: US)
  Receive Date: 20200920
  Receipt Date: 20200920
  Transmission Date: 20201103
  Serious: No
  Sender: FDA-Public Use
  Company Number: None

PATIENT
  Age: 11 Month
  Sex: Male

DRUGS (1)
  1. TRIAMCINOLONE ACETONIDE CREAM [Suspect]
     Active Substance: TRIAMCINOLONE ACETONIDE
     Indication: PENILE ADHESION
     Dates: start: 20200910, end: 20200920

REACTIONS (3)
  - Rash papular [None]
  - Genital rash [None]
  - Rash erythematous [None]

NARRATIVE: CASE EVENT DATE: 20200919
